FAERS Safety Report 6532912-7 (Version None)
Quarter: 2010Q1

REPORT INFORMATION
  Report Type: 
  Country: None (occurrence: None)
  Receive Date: 20100111
  Receipt Date: 20091224
  Transmission Date: 20100710
  Serious: No
  Sender: FDA-Public Use
  Company Number: JP-ROCHE-678490

PATIENT
  Sex: Male

DRUGS (1)
  1. TAMIFLU [Suspect]
     Indication: DRUG USE FOR UNKNOWN INDICATION
     Dosage: THERAPY DURATION: 2 DAYS.
     Route: 048

REACTIONS (2)
  - NO ADVERSE EVENT [None]
  - OVERDOSE [None]
